FAERS Safety Report 5744692-3 (Version None)
Quarter: 2008Q2

REPORT INFORMATION
  Report Type: 
  Country: None (occurrence: None)
  Receive Date: 20080520
  Receipt Date: 20080512
  Transmission Date: 20081010
  Serious: Yes (Hospitalization)
  Sender: FDA-Public Use
  Company Number: JP-PFIZER INC-2008039960

PATIENT
  Age: 67 Year
  Sex: Male

DRUGS (2)
  1. NORVASC [Suspect]
     Indication: HYPERTENSION
     Dosage: DAILY DOSE:5MG
     Route: 048
     Dates: start: 20080331, end: 20080430
  2. FERROUS CITRATE [Concomitant]
     Route: 048

REACTIONS (1)
  - GRANULOCYTE COUNT DECREASED [None]
